FAERS Safety Report 9523043 (Version 2)
Quarter: 2013Q4

REPORT INFORMATION
  Report Type: Spontaneous
  Country: US (occurrence: US)
  Receive Date: 20130913
  Receipt Date: 20131127
  Transmission Date: 20140711
  Serious: Yes (Hospitalization, Other)
  Sender: FDA-Public Use
  Company Number: CHPA2013US013911

PATIENT
  Age: 82 Year
  Sex: Female

DRUGS (2)
  1. KERI ADVANCED [Suspect]
     Indication: HAIR DISORDER
     Dosage: DAILY AFTER MORNING SHOWER
     Route: 061
  2. KERI ADVANCED [Suspect]
     Indication: THERAPEUTIC SKIN CARE TOPICAL

REACTIONS (10)
  - Hip fracture [Recovered/Resolved]
  - Lower limb fracture [Recovered/Resolved]
  - Fall [Recovered/Resolved]
  - Gait disturbance [Unknown]
  - Herpes zoster [Not Recovered/Not Resolved]
  - Diabetes mellitus [Not Recovered/Not Resolved]
  - Hypoacusis [Unknown]
  - Malaise [Not Recovered/Not Resolved]
  - Off label use [Unknown]
  - Therapeutic response unexpected [Unknown]
